FAERS Safety Report 21996038 (Version 1)
Quarter: 2023Q1

REPORT INFORMATION
  Report Type: Other
  Country: None (occurrence: JP)
  Receive Date: 20230215
  Receipt Date: 20230215
  Transmission Date: 20230418
  Serious: Yes (Hospitalization)
  Sender: FDA-Public Use
  Company Number: JP-B.Braun Medical Inc.-2138002

PATIENT
  Age: 49 Year
  Sex: Female

DRUGS (5)
  1. ACETAMINOPHEN [Suspect]
     Active Substance: ACETAMINOPHEN
  2. MELATONIN [Suspect]
     Active Substance: MELATONIN
  3. ETHENZAMIDE [Suspect]
     Active Substance: ETHENZAMIDE
  4. RAMOSETRON HYDROCHLORIDE [Suspect]
     Active Substance: RAMOSETRON HYDROCHLORIDE
  5. LOPERAMIDE [Suspect]
     Active Substance: LOPERAMIDE

REACTIONS (1)
  - Colitis microscopic [Recovered/Resolved]
